FAERS Safety Report 24989967 (Version 1)
Quarter: 2025Q1

REPORT INFORMATION
  Report Type: Spontaneous
  Country: US (occurrence: None)
  Receive Date: 20250219
  Receipt Date: 20250219
  Transmission Date: 20250409
  Serious: Yes (Other)
  Sender: FDA-CTU
  Company Number: None

PATIENT
  Age: 69 Year
  Sex: Male
  Weight: 80.74 kg

DRUGS (1)
  1. CIPROFLOXACIN [Suspect]
     Active Substance: CIPROFLOXACIN
     Indication: Prostate infection
     Dosage: FREQUENCY : TWICE A DAY;?
     Route: 048
     Dates: start: 20220201, end: 20220208

REACTIONS (13)
  - Illness [None]
  - Genital rash [None]
  - Rash [None]
  - Burning sensation [None]
  - Burning sensation [None]
  - Dysuria [None]
  - Abdominal pain upper [None]
  - Abdominal pain [None]
  - Mucous stools [None]
  - Diarrhoea [None]
  - Oedema peripheral [None]
  - Oedema peripheral [None]
  - Suicidal ideation [None]

NARRATIVE: CASE EVENT DATE: 20220205
